FAERS Safety Report 20581142 (Version 1)
Quarter: 2022Q1

REPORT INFORMATION
  Report Type: Other
  Country: FR (occurrence: FR)
  Receive Date: 20220311
  Receipt Date: 20220311
  Transmission Date: 20220423
  Serious: Yes (Hospitalization)
  Sender: FDA-Public Use
  Company Number: None

PATIENT

DRUGS (3)
  1. SERTRALINE [Suspect]
     Active Substance: SERTRALINE HYDROCHLORIDE
     Indication: Mixed anxiety and depressive disorder
     Dosage: 50 MILLIGRAM, QD
     Route: 048
     Dates: start: 202107
  2. MIANSERIN HYDROCHLORIDE [Suspect]
     Active Substance: MIANSERIN HYDROCHLORIDE
     Indication: Mixed anxiety and depressive disorder
     Dosage: 10 MILLIGRAM, QD
     Route: 048
     Dates: start: 202107
  3. DIAZEPAM [Suspect]
     Active Substance: DIAZEPAM
     Indication: Mixed anxiety and depressive disorder
     Dosage: 5 MILLIGRAM 2 DAYS
     Route: 048
     Dates: start: 202108

REACTIONS (1)
  - Pollakiuria [Not Recovered/Not Resolved]

NARRATIVE: CASE EVENT DATE: 20210915
